FAERS Safety Report 4817446-X (Version None)
Quarter: 2005Q4

REPORT INFORMATION
  Report Type: 
  Country: None (occurrence: None)
  Receive Date: 20051101
  Receipt Date: 20050414
  Transmission Date: 20060501
  Serious: Yes (Other)
  Sender: FDA-Public Use
  Company Number: US-MERCK-0504USA02944

PATIENT
  Age: 70 Year
  Sex: Male
  Weight: 72 kg

DRUGS (9)
  1. VIOXX [Suspect]
     Indication: OSTEOARTHRITIS
     Route: 048
     Dates: start: 20010101, end: 20040901
  2. VIOXX [Suspect]
     Route: 048
     Dates: start: 20010101, end: 20040901
  3. ASPIRIN [Concomitant]
     Route: 065
     Dates: start: 19890501, end: 20020301
  4. ACCUPRIL [Concomitant]
     Route: 065
  5. COUMADIN [Concomitant]
     Route: 065
  6. TOPROL-XL [Concomitant]
     Route: 065
  7. NORVASC [Concomitant]
     Route: 065
  8. PREVACID [Concomitant]
     Route: 065
  9. LIPITOR [Concomitant]
     Route: 065

REACTIONS (2)
  - ARTERIAL DISORDER [None]
  - CEREBROVASCULAR ACCIDENT [None]
